FAERS Safety Report 8646004 (Version 9)
Quarter: 2014Q4

REPORT INFORMATION
  Report Type: Spontaneous
  Country: US (occurrence: US)
  Receive Date: 20120702
  Receipt Date: 20141104
  Transmission Date: 20150529
  Serious: Yes (Death, Hospitalization, Disabling, Other)
  Sender: FDA-Public Use
  Company Number: US-009507513-1206USA04855

PATIENT
  Sex: Male

DRUGS (5)
  1. FOSAMAX [Suspect]
     Active Substance: ALENDRONATE SODIUM
     Dosage: UNK
     Route: 048
     Dates: start: 20110412
  2. FOSAMAX PLUS D [Suspect]
     Active Substance: ALENDRONATE SODIUM\CHOLECALCIFEROL
     Dosage: UNK UNK, QW
     Route: 048
  3. ALENDRONATE SODIUM. [Suspect]
     Active Substance: ALENDRONATE SODIUM
     Dosage: 70 MG, QW
     Route: 048
  4. INSULIN [Concomitant]
     Active Substance: INSULIN NOS
     Indication: TYPE 2 DIABETES MELLITUS
  5. FOSAMAX [Suspect]
     Active Substance: ALENDRONATE SODIUM
     Indication: OSTEOPOROSIS
     Dosage: 70 MG, UNK
     Route: 048
     Dates: start: 200412, end: 200806

REACTIONS (36)
  - Stress fracture [Unknown]
  - Aortic valve replacement [Unknown]
  - Pulmonary vascular disorder [Unknown]
  - Interstitial lung disease [Unknown]
  - Femur fracture [Unknown]
  - Aortic aneurysm [Unknown]
  - Sleep apnoea syndrome [Unknown]
  - Osteoporosis [Unknown]
  - Renal failure [Unknown]
  - Femur fracture [Unknown]
  - Medical device removal [Unknown]
  - Implantable defibrillator insertion [Unknown]
  - Mitral valve repair [Unknown]
  - Restless legs syndrome [Unknown]
  - Hypertension [Unknown]
  - Panic attack [Unknown]
  - Coronary artery disease [Unknown]
  - Osteoarthritis [Unknown]
  - Emotional distress [Not Recovered/Not Resolved]
  - Femur fracture [Unknown]
  - Chronic obstructive pulmonary disease [Unknown]
  - Asthma [Unknown]
  - Myocardial infarction [Unknown]
  - Peripheral artery bypass [Unknown]
  - Low turnover osteopathy [Unknown]
  - Rib fracture [Unknown]
  - Femur fracture [Not Recovered/Not Resolved]
  - Death [Fatal]
  - Open reduction of fracture [Unknown]
  - Cataract operation [Unknown]
  - Spinal osteoarthritis [Unknown]
  - Rib fracture [Unknown]
  - Carotid endarterectomy [Unknown]
  - Arterectomy with graft replacement [Unknown]
  - Cardiac failure congestive [Not Recovered/Not Resolved]
  - Peripheral arterial occlusive disease [Unknown]

NARRATIVE: CASE EVENT DATE: 200701
